FAERS Safety Report 9916982 (Version 2)
Quarter: 2014Q1

REPORT INFORMATION
  Report Type: Spontaneous
  Country: US (occurrence: DE)
  Receive Date: 20140221
  Receipt Date: 20140305
  Transmission Date: 20141002
  Serious: Yes (Hospitalization)
  Sender: FDA-Public Use
  Company Number: DE-FRI-1000054388

PATIENT
  Sex: Male

DRUGS (5)
  1. ROFLUMILAST [Suspect]
     Indication: CHRONIC OBSTRUCTIVE PULMONARY DISEASE
     Dates: start: 2011
  2. NEBIVOLOL [Suspect]
  3. SPIRIVA [Concomitant]
  4. BERODUAL [Concomitant]
  5. VIANI [Concomitant]

REACTIONS (4)
  - Pneumothorax [Unknown]
  - Skin irritation [Not Recovered/Not Resolved]
  - Decreased appetite [Recovered/Resolved]
  - Nausea [Recovered/Resolved]
